FAERS Safety Report 7224856-2 (Version None)
Quarter: 2011Q1

REPORT INFORMATION
  Report Type: 
  Country: None (occurrence: None)
  Receive Date: 20110113
  Receipt Date: 20110110
  Transmission Date: 20110831
  Serious: Yes (Hospitalization, Other)
  Sender: FDA-Public Use
  Company Number: US-ROXANE LABORATORIES, INC.-2011-RO-00045RO

PATIENT
  Age: 83 Year
  Sex: Female
  Weight: 67 kg

DRUGS (7)
  1. DOXORUBICIN HCL [Suspect]
     Indication: NON-HODGKIN'S LYMPHOMA
     Dates: start: 20030520, end: 20030520
  2. PREDNISONE [Suspect]
     Indication: NON-HODGKIN'S LYMPHOMA
     Dates: start: 20030520, end: 20030520
  3. VINCRISTINE SULFATE [Suspect]
     Indication: NON-HODGKIN'S LYMPHOMA
     Dates: start: 20030520, end: 20030520
  4. CYCLOPHOSPHAMIDE [Suspect]
     Indication: NON-HODGKIN'S LYMPHOMA
     Dates: start: 20030520, end: 20030520
  5. RITUXIMAB [Concomitant]
     Dates: start: 20030520, end: 20030520
  6. NEULASTA [Suspect]
     Indication: CHEMOTHERAPY
     Dosage: 6 MG
     Route: 058
     Dates: start: 20030521, end: 20030521
  7. DEXRAZOXANE [Suspect]
     Indication: NON-HODGKIN'S LYMPHOMA
     Dates: start: 20030520, end: 20030520

REACTIONS (2)
  - DEHYDRATION [None]
  - FEBRILE NEUTROPENIA [None]
